FAERS Safety Report 22253551 (Version 1)
Quarter: 2023Q2

REPORT INFORMATION
  Report Type: Spontaneous
  Country: US (occurrence: US)
  Receive Date: 20230426
  Receipt Date: 20230426
  Transmission Date: 20230722
  Serious: Yes (Hospitalization, Other)
  Sender: FDA-Public Use
  Company Number: US-STRIDES ARCOLAB LIMITED-2023SP005651

PATIENT
  Age: 6 Decade
  Sex: Male

DRUGS (14)
  1. DEXAMETHASONE [Suspect]
     Active Substance: DEXAMETHASONE
     Indication: Plasma cell myeloma
     Dosage: UNK (VRD REGIMEN)
     Route: 065
     Dates: start: 201712
  2. DEXAMETHASONE [Suspect]
     Active Substance: DEXAMETHASONE
     Dosage: UNK, CYCLICAL, ADMINISTERED UNDER THE DARA-R-D REGIMEN
     Route: 065
     Dates: start: 201805
  3. DEXAMETHASONE [Suspect]
     Active Substance: DEXAMETHASONE
     Dosage: 40 MILLIGRAM, CYCLICAL, ADMINISTERED ON DAYS 1-4 OF EACH CYCLE UNDER THE KRD-PACE REGIMEN
     Route: 048
  4. ETOPOSIDE [Suspect]
     Active Substance: ETOPOSIDE
     Indication: Plasma cell myeloma
     Dosage: 40 MILLIGRAM/SQ. METER PER DAY, CYCLICAL, ADMINISTERED ON DAYS 1-4 UNDER THE KRD-PACE REGIMEN (INFUS
     Route: 042
  5. CISPLATIN [Suspect]
     Active Substance: CISPLATIN
     Indication: Plasma cell myeloma
     Dosage: 10 MILLIGRAM/SQ. METER, PER DAY, CYCLICAL, ADMINISTERED UNDER THE KRD-PACE REGIMEN
     Route: 065
  6. DOXORUBICIN [Suspect]
     Active Substance: DOXORUBICIN
     Indication: Plasma cell myeloma
     Dosage: 10 MILLIGRAM/SQ. METER PER DAY, CYCLICAL, ADMINISTERED UNDER THE KRD-PACE REGIMEN
     Route: 065
  7. DARATUMUMAB [Suspect]
     Active Substance: DARATUMUMAB
     Indication: Plasma cell myeloma
     Dosage: UNK, ADMINISTERED UNDER THE DARA-R-D REGIMEN
     Route: 065
     Dates: start: 201805
  8. LENALIDOMIDE [Suspect]
     Active Substance: LENALIDOMIDE
     Indication: Plasma cell myeloma
     Dosage: UNK (VRD REGIMEN)
     Route: 065
     Dates: start: 201712
  9. LENALIDOMIDE [Suspect]
     Active Substance: LENALIDOMIDE
     Dosage: UNK, CYCLICAL, ADMINISTERED UNDER THE DARA-R-D REGIMEN
     Route: 065
     Dates: start: 201805
  10. LENALIDOMIDE [Suspect]
     Active Substance: LENALIDOMIDE
     Dosage: 15 MILLIGRAM PER DAY, CYCLICAL , ADMINISTERED ON DAYS 1-21 UNDER THE KRD-PACE REGIMEN
     Route: 065
  11. CARFILZOMIB [Suspect]
     Active Substance: CARFILZOMIB
     Indication: Plasma cell myeloma
     Dosage: 20 MILLIGRAM/SQ. METER, CYCLICAL, ADMINISTERED ON DAY 1 OF EACH CYCLE UNDER THE KRD-PACE REGIMEN
     Route: 065
  12. CARFILZOMIB [Suspect]
     Active Substance: CARFILZOMIB
     Dosage: 27 MILLIGRAM/SQ. METER, CYCLICAL, ADMINISTERED ON DAY 2 OF EACH CYCLE UNDER THE KRD-PACE REGIMEN
     Route: 065
  13. CYCLOPHOSPHAMIDE [Suspect]
     Active Substance: CYCLOPHOSPHAMIDE
     Indication: Plasma cell myeloma
     Dosage: 400 MILLIGRAM/SQ. METER PER DAY, CYCLICAL, ADMINISTERED UNDER THE KRD-PACE REGIMEN
     Route: 065
  14. BORTEZOMIB [Suspect]
     Active Substance: BORTEZOMIB
     Indication: Plasma cell myeloma
     Dosage: UNK (VRD REGIMEN)
     Route: 065
     Dates: start: 201712

REACTIONS (8)
  - Deep vein thrombosis [Recovered/Resolved]
  - Mucosal inflammation [Recovered/Resolved]
  - Neutropenia [Recovered/Resolved]
  - Thrombocytopenia [Recovered/Resolved]
  - Anaemia [Recovered/Resolved]
  - Drug ineffective [Unknown]
  - Therapy partial responder [Unknown]
  - Off label use [Unknown]
